FAERS Safety Report 5833694-4 (Version None)
Quarter: 2008Q3

REPORT INFORMATION
  Report Type: 
  Country: None (occurrence: None)
  Receive Date: 20080804
  Receipt Date: 20080804
  Transmission Date: 20090109
  Serious: No
  Sender: FDA-Public Use
  Company Number: None

PATIENT

DRUGS (1)
  1. MAGNEVIST [Suspect]

REACTIONS (25)
  - ARTHROPATHY [None]
  - BLINDNESS UNILATERAL [None]
  - BURNING SENSATION [None]
  - CEREBROVASCULAR ACCIDENT [None]
  - DYSPHONIA [None]
  - DYSPNOEA [None]
  - ERYTHEMA [None]
  - GAIT DISTURBANCE [None]
  - HYPOAESTHESIA [None]
  - JOINT LOCK [None]
  - LIGAMENT RUPTURE [None]
  - MOVEMENT DISORDER [None]
  - MUSCULAR WEAKNESS [None]
  - OEDEMA PERIPHERAL [None]
  - PAIN IN EXTREMITY [None]
  - PNEUMONIA [None]
  - POST PROCEDURAL COMPLICATION [None]
  - PRURITUS [None]
  - RENAL IMPAIRMENT [None]
  - SKIN DISCOLOURATION [None]
  - SKIN DISORDER [None]
  - UNRESPONSIVE TO STIMULI [None]
  - URINARY TRACT INFECTION [None]
  - VEIN DISORDER [None]
  - VISUAL IMPAIRMENT [None]
